FAERS Safety Report 7964659-4 (Version None)
Quarter: 2011Q4

REPORT INFORMATION
  Report Type: 
  Country: None (occurrence: None)
  Receive Date: 20111205
  Receipt Date: 20111205
  Transmission Date: 20120403
  Serious: Yes (Hospitalization)
  Sender: FDA-Public Use
  Company Number: None

PATIENT
  Sex: Male
  Weight: 61.05 kg

DRUGS (4)
  1. CYCLOPHOSPHAMIDE [Suspect]
     Dosage: 1212 MG
  2. PENTOSTATIN [Suspect]
     Dosage: 8 MG
  3. CAMPATH [Suspect]
     Dosage: 60 MG
  4. RITUXIMAB (MOAB C2B8 ANTI CD20, CHIMERIC) [Suspect]
     Dosage: 758 MG

REACTIONS (41)
  - FACE INJURY [None]
  - GAIT DISTURBANCE [None]
  - PANCYTOPENIA [None]
  - DYSPNOEA [None]
  - ASPERGILLOSIS [None]
  - DEHYDRATION [None]
  - DISEASE RECURRENCE [None]
  - SINUSITIS [None]
  - JUGULAR VEIN DISTENSION [None]
  - THROMBOCYTOPENIA [None]
  - FALL [None]
  - BRONCHITIS [None]
  - PLEURAL EFFUSION [None]
  - MUSCULOSKELETAL STIFFNESS [None]
  - NON-SMALL CELL LUNG CANCER [None]
  - BIOPSY LUNG ABNORMAL [None]
  - OEDEMA PERIPHERAL [None]
  - ASTHENIA [None]
  - ABDOMINAL DISTENSION [None]
  - ATELECTASIS [None]
  - PNEUMOTHORAX [None]
  - CARDIOMEGALY [None]
  - NUCHAL RIGIDITY [None]
  - RHONCHI [None]
  - CARDIAC FAILURE CONGESTIVE [None]
  - CYTOMEGALOVIRUS TEST POSITIVE [None]
  - DECREASED APPETITE [None]
  - LETHARGY [None]
  - ANAEMIA [None]
  - PRODUCTIVE COUGH [None]
  - CANDIDIASIS [None]
  - HYPOPHAGIA [None]
  - RALES [None]
  - FUNGAL INFECTION [None]
  - FATIGUE [None]
  - LUNG NEOPLASM [None]
  - CONFUSIONAL STATE [None]
  - CEREBRAL ATROPHY [None]
  - PERICARDIAL EFFUSION [None]
  - ASCITES [None]
  - PULMONARY NECROSIS [None]
